FAERS Safety Report 8614098-8 (Version None)
Quarter: 2012Q3

REPORT INFORMATION
  Report Type: 
  Country: None (occurrence: None)
  Receive Date: 20120823
  Receipt Date: 20120727
  Transmission Date: 20120928
  Serious: No
  Sender: FDA-Public Use
  Company Number: US-009507513-1208USA000270

PATIENT

DRUGS (5)
  1. MILK THISTLE [Concomitant]
     Dosage: UNK
     Route: 048
  2. VICTRELIS [Suspect]
     Dosage: 800 MG, TID
     Route: 048
  3. CELEXA [Concomitant]
     Dosage: 40 MG, UNK
     Route: 048
  4. PEG-INTRON [Concomitant]
     Dosage: 120 MICROGRAM, UNK
     Route: 058
  5. RIBAVIRIN [Concomitant]
     Dosage: 800 PAK PER DAY
     Route: 048

REACTIONS (3)
  - FATIGUE [None]
  - INFLUENZA LIKE ILLNESS [None]
  - PRURITUS [None]
